FAERS Safety Report 5276112-X (Version None)
Quarter: 2007Q1

REPORT INFORMATION
  Report Type: 
  Country: None (occurrence: None)
  Receive Date: 20070326
  Receipt Date: 20070315
  Transmission Date: 20070707
  Serious: Yes (Hospitalization)
  Sender: FDA-Public Use
  Company Number: DE-ELI_LILLY_AND_COMPANY-DE200703003322

PATIENT
  Sex: Female
  Weight: 58.5 kg

DRUGS (3)
  1. GEMCITABINE HCL [Suspect]
     Indication: BREAST CANCER
  2. GEMCITABINE HCL [Suspect]
     Dosage: 1630 MG, UNK
     Route: 042
     Dates: start: 20070123
  3. *DOCETAXEL [Suspect]
     Indication: BREAST CANCER
     Dosage: 122 MG, UNK
     Route: 042
     Dates: start: 20061116

REACTIONS (3)
  - HYPERTHERMIA [None]
  - OEDEMA PERIPHERAL [None]
  - VEIN PAIN [None]
